FAERS Safety Report 20986463 (Version 1)
Quarter: 2022Q2

REPORT INFORMATION
  Report Type: Spontaneous
  Country: US (occurrence: None)
  Receive Date: 20220618
  Receipt Date: 20220618
  Transmission Date: 20220721
  Serious: Yes (Death)
  Sender: FDA-Public Use
  Company Number: None

PATIENT
  Age: 46 Year
  Sex: Male

DRUGS (1)
  1. BIKTARVY [Suspect]
     Active Substance: BICTEGRAVIR SODIUM\EMTRICITABINE\TENOFOVIR ALAFENAMIDE FUMARATE
     Indication: HIV infection
     Dosage: 1 TABLET QD ORAL?
     Route: 048
     Dates: start: 20220309

REACTIONS (3)
  - Haemoptysis [None]
  - Pneumonia [None]
  - Bronchopulmonary aspergillosis [None]

NARRATIVE: CASE EVENT DATE: 20220604
